FAERS Safety Report 10497347 (Version 3)
Quarter: 2014Q4

REPORT INFORMATION
  Report Type: Spontaneous
  Country: GB (occurrence: GB)
  Receive Date: 20141006
  Receipt Date: 20141020
  Transmission Date: 20150528
  Serious: Yes (Other)
  Sender: FDA-Public Use
  Company Number: GB-ROCHE-1467136

PATIENT
  Age: 41 Year
  Sex: Female
  Weight: 74 kg

DRUGS (3)
  1. VIRAFERONPEG [Suspect]
     Active Substance: PEGINTERFERON ALFA-2B
     Indication: HEPATITIS C VIRUS TEST POSITIVE
     Route: 058
     Dates: start: 20140404
  2. RIBAVIRIN. [Suspect]
     Active Substance: RIBAVIRIN
     Indication: HEPATITIS C VIRUS TEST POSITIVE
     Dosage: 3 DF, BID,TOTAL DAILY DOSE 1200 MG
     Route: 048
     Dates: start: 20140404
  3. VICTRELIS [Suspect]
     Active Substance: BOCEPREVIR
     Indication: HEPATITIS C VIRUS TEST POSITIVE
     Dosage: 4 DF, TID, TOTAL DAILY DOSE 2400 MG
     Route: 048
     Dates: start: 20140404, end: 20140801

REACTIONS (8)
  - Eyelid exfoliation [Unknown]
  - Skin fissures [Unknown]
  - Skin exfoliation [Unknown]
  - Dry eye [Unknown]
  - Dermatitis [Unknown]
  - Vasculitic rash [Recovering/Resolving]
  - Dry skin [Unknown]
  - Swelling face [Unknown]

NARRATIVE: CASE EVENT DATE: 20140730
